FAERS Safety Report 7524742-4 (Version None)
Quarter: 2011Q2

REPORT INFORMATION
  Report Type: 
  Country: None (occurrence: None)
  Receive Date: 20110525
  Receipt Date: 20110511
  Transmission Date: 20111010
  Serious: Yes (Hospitalization)
  Sender: FDA-Public Use
  Company Number: DSA_46709_2011

PATIENT
  Age: 75 Year
  Sex: Male

DRUGS (13)
  1. SIMVASTATIN [Concomitant]
  2. CELECOXIB [Suspect]
     Indication: PRODUCT USED FOR UNKNOWN INDICATION
     Dosage: 400 MG QD, ORAL
     Route: 048
     Dates: start: 20110201, end: 20110209
  3. GABAPENTIN [Concomitant]
  4. METOPROLOL [Concomitant]
  5. DOCETAXEL [Concomitant]
  6. ENALAPRIL MALEATE [Suspect]
     Indication: ESSENTIAL HYPERTENSION
     Dosage: 20 MG QD, ORAL;
     Route: 048
     Dates: start: 20100401, end: 20110209
  7. OXASCAND [Concomitant]
  8. ACETAMINOPHEN [Concomitant]
  9. THERAPEUTIC RADIOPHARMACETUICALS [Concomitant]
  10. HYDROMORPHONE HCL [Concomitant]
  11. OMEPRAZOLE [Concomitant]
  12. MORFIN [Concomitant]
  13. MYCOSTATIN [Suspect]
     Indication: ORAL FUNGAL INFECTION
     Dosage: DF, ORAL;
     Route: 048
     Dates: start: 20110209, end: 20110209

REACTIONS (4)
  - STEVENS-JOHNSON SYNDROME [None]
  - DYSPHAGIA [None]
  - DIARRHOEA [None]
  - ORAL FUNGAL INFECTION [None]
